FAERS Safety Report 4662479-X (Version None)
Quarter: 2005Q2

REPORT INFORMATION
  Report Type: 
  Country: None (occurrence: None)
  Receive Date: 20050513
  Receipt Date: 20050513
  Transmission Date: 20051028
  Serious: Yes (Hospitalization)
  Sender: FDA-Public Use
  Company Number: None

PATIENT
  Age: 66 Year
  Sex: Female
  Weight: 116 kg

DRUGS (8)
  1. AVANDIA [Suspect]
     Indication: DIABETES MELLITUS
     Dosage: 4MG  BID   ORAL
     Route: 048
     Dates: start: 20050402, end: 20050510
  2. ACTOS [Suspect]
     Indication: DIABETES MELLITUS
     Dosage: 30 MG   QAM   ORAL
     Route: 048
     Dates: start: 20050402, end: 20050510
  3. NORVASC [Concomitant]
  4. METOPROLOL [Concomitant]
  5. GLYBURIDE [Concomitant]
  6. METFORMIN [Concomitant]
  7. ALTACE [Concomitant]
  8. ASPIRIN [Concomitant]

REACTIONS (1)
  - CARDIAC FAILURE CONGESTIVE [None]
